FAERS Safety Report 7611834-4 (Version None)
Quarter: 2011Q3

REPORT INFORMATION
  Report Type: 
  Country: None (occurrence: None)
  Receive Date: 20110715
  Receipt Date: 20110705
  Transmission Date: 20111222
  Serious: Yes (Hospitalization)
  Sender: FDA-Public Use
  Company Number: BR-SANOFI-AVENTIS-2011SA043735

PATIENT
  Age: 75 Year
  Sex: Male
  Weight: 84 kg

DRUGS (10)
  1. DRONEDARONE HCL [Suspect]
     Indication: ATRIAL FIBRILLATION
     Route: 048
     Dates: start: 20110511
  2. WARFARIN SODIUM [Concomitant]
  3. LOSARTAN [Concomitant]
  4. SPIRONOLACTONE [Concomitant]
  5. METFORMIN HCL [Concomitant]
  6. CARVEDILOL [Concomitant]
  7. DIURETICS [Concomitant]
  8. FUROSEMIDE [Concomitant]
  9. INSULIN [Concomitant]
  10. TYROSINE [Concomitant]

REACTIONS (2)
  - ISCHAEMIC STROKE [None]
  - CARDIAC FAILURE [None]
